FAERS Safety Report 5072357-2 (Version None)
Quarter: 2006Q3

REPORT INFORMATION
  Report Type: 
  Country: None (occurrence: None)
  Receive Date: 20060801
  Receipt Date: 20060724
  Transmission Date: 20061208
  Serious: Yes (Other)
  Sender: FDA-Public Use
  Company Number: 227299

PATIENT
  Age: 59 Year
  Sex: Male

DRUGS (6)
  1. XOLAIR [Suspect]
     Indication: ASTHMA
     Dosage: 300 MG,Q4W, SUBCUTANEOUS
     Route: 058
     Dates: start: 20050622
  2. FLOVENT [Concomitant]
  3. SEREVENT DISKUS (SALMETEROL XINAFOATE) [Concomitant]
  4. ACCOLATE [Concomitant]
  5. PREDNISONE TAB [Concomitant]
  6. ANTIBIOTICS (ANTIBIOTICS NOS) [Concomitant]

REACTIONS (3)
  - ALLERGIC GRANULOMATOUS ANGIITIS [None]
  - ASTHMA [None]
  - CONDITION AGGRAVATED [None]
